FAERS Safety Report 19105214 (Version 2)
Quarter: 2021Q2

REPORT INFORMATION
  Report Type: Report from Study
  Country: US (occurrence: US)
  Receive Date: 20210408
  Receipt Date: 20210415
  Transmission Date: 20210717
  Serious: Yes (Other)
  Sender: FDA-Public Use
  Company Number: US-HBP-2021US021911

PATIENT
  Age: 69 Year
  Sex: Male

DRUGS (3)
  1. VALCHLOR [Suspect]
     Active Substance: MECHLORETHAMINE
     Indication: CUTANEOUS T-CELL LYMPHOMA
     Dosage: THIN FILM, SINGLE
     Route: 061
     Dates: start: 2020, end: 2020
  2. VALCHLOR [Suspect]
     Active Substance: MECHLORETHAMINE
     Dosage: UNK, SINGLE
     Route: 061
     Dates: start: 202103, end: 2021
  3. VALCHLOR [Suspect]
     Active Substance: MECHLORETHAMINE
     Dosage: THIN FILM, SINGLE
     Route: 061
     Dates: start: 2021

REACTIONS (5)
  - Rash [Unknown]
  - Application site irritation [Unknown]
  - Application site erythema [Unknown]
  - Cutaneous T-cell lymphoma recurrent [Recovering/Resolving]
  - Product use issue [Recovered/Resolved]

NARRATIVE: CASE EVENT DATE: 2021
